FAERS Safety Report 25655353 (Version 1)
Quarter: 2025Q3

REPORT INFORMATION
  Report Type: Spontaneous
  Country: US (occurrence: None)
  Receive Date: 20250807
  Receipt Date: 20250807
  Transmission Date: 20251021
  Serious: Yes (Other)
  Sender: FDA-CTU
  Company Number: None

PATIENT
  Age: 22 Year
  Sex: Male
  Weight: 65.25 kg

DRUGS (9)
  1. CAPLYTA [Suspect]
     Active Substance: LUMATEPERONE
     Indication: Bipolar I disorder
     Dosage: OTHER QUANTITY : 1 CAPSULE(S);?FREQUENCY : DAILY;?
     Route: 048
     Dates: start: 20250806, end: 20250807
  2. Finasteride 1 mg PO QD [Concomitant]
  3. Lithium 600 mg PO BID [Concomitant]
  4. Emergency meds- EpiPen for allergic reaction [Concomitant]
  5. CALCIUM [Concomitant]
     Active Substance: CALCIUM
  6. VITAMINS [Concomitant]
     Active Substance: VITAMINS
  7. GLUCOSAMINE [Concomitant]
     Active Substance: GLUCOSAMINE
  8. Algol oil [Concomitant]
  9. MENAQUINONE 6 [Concomitant]
     Active Substance: MENAQUINONE 6

REACTIONS (4)
  - Hypersensitivity [None]
  - Nausea [None]
  - Pain [None]
  - Vomiting [None]

NARRATIVE: CASE EVENT DATE: 20250806
